FAERS Safety Report 19505005 (Version 1)
Quarter: 2021Q3

REPORT INFORMATION
  Report Type: Spontaneous
  Country: US (occurrence: US)
  Receive Date: 20210707
  Receipt Date: 20210707
  Transmission Date: 20211014
  Serious: Yes (Disabling)
  Sender: FDA-Public Use
  Company Number: None

PATIENT
  Age: 28 Year
  Sex: Male
  Weight: 67.5 kg

DRUGS (4)
  1. FINASTERIDE. [Suspect]
     Active Substance: FINASTERIDE
     Indication: PROPHYLAXIS
     Dosage: ?          QUANTITY:1 TABLET(S);?
     Route: 048
     Dates: start: 20191001, end: 20191226
  2. ZINC. [Concomitant]
     Active Substance: ZINC
  3. VITAMIN D [Concomitant]
     Active Substance: VITAMIN D NOS
  4. FINASTERIDE. [Suspect]
     Active Substance: FINASTERIDE
     Indication: ALOPECIA
     Dosage: ?          QUANTITY:1 TABLET(S);?
     Route: 048
     Dates: start: 20191001, end: 20191226

REACTIONS (8)
  - Male orgasmic disorder [None]
  - Semen volume decreased [None]
  - Gynaecomastia [None]
  - Sleep disorder [None]
  - Erectile dysfunction [None]
  - Loss of libido [None]
  - Sexual dysfunction [None]
  - Depression [None]

NARRATIVE: CASE EVENT DATE: 20191001
